FAERS Safety Report 5989279-2 (Version None)
Quarter: 2008Q4

REPORT INFORMATION
  Report Type: 
  Country: None (occurrence: None)
  Receive Date: 20081205
  Receipt Date: 20081128
  Transmission Date: 20090506
  Serious: Yes (Death, Life-Threatening, Hospitalization)
  Sender: FDA-Public Use
  Company Number: 2008JP005181

PATIENT
  Age: 50 Year
  Sex: Female
  Weight: 55 kg

DRUGS (14)
  1. PROGRAF [Suspect]
     Indication: LIVER TRANSPLANT
     Dosage: 3 MG/D , ORAL
     Route: 048
     Dates: start: 20070117, end: 20070530
  2. CLYCLOPHOSPHAMIDE (CYCLOPHOSPHAMIDE) FORMULATION UNKNOWN [Concomitant]
  3. CELLCEPT [Concomitant]
  4. THYMOGLOBULINE (ANTITHYMOCYTE IMMUNOGLOBULIN (RABBIT)) INJECTION [Concomitant]
  5. PROSTAGLANDIN E1 (ALPROSTADIL) INJECTION [Concomitant]
  6. ELASPOL (SIVELESTAT) INJECTION [Concomitant]
  7. SOLU-MEDROL [Concomitant]
  8. FOY (GABEXATE MESILATE) INJECTION [Concomitant]
  9. FUNGUARD (MICAFUNGIN) INJECTION [Concomitant]
  10. DENOSINE (GANCICLOVIR) INJECTION [Concomitant]
  11. FLUMARIN (FLOMOXEF SODIUM) INJECTION [Concomitant]
  12. VICCILLIN INJECTION [Concomitant]
  13. IMURAN [Concomitant]
  14. PROPOFOL (PROPOFOL) FORMULATION UNKNOWN [Concomitant]

REACTIONS (12)
  - ABDOMINAL INFECTION [None]
  - BILIARY TRACT INFECTION [None]
  - BLOOD LACTATE DEHYDROGENASE INCREASED [None]
  - GENERAL PHYSICAL HEALTH DETERIORATION [None]
  - HAEMATOMA INFECTION [None]
  - LIVER TRANSPLANT [None]
  - MELAENA [None]
  - MULTI-ORGAN FAILURE [None]
  - OPERATIVE HAEMORRHAGE [None]
  - STRESS [None]
  - THROMBOCYTOPENIA [None]
  - THROMBOTIC MICROANGIOPATHY [None]
